FAERS Safety Report 6191589-3 (Version None)
Quarter: 2009Q2

REPORT INFORMATION
  Report Type: 
  Country: None (occurrence: None)
  Receive Date: 20090515
  Receipt Date: 20090512
  Transmission Date: 20091009
  Serious: Yes (Hospitalization, Other)
  Sender: FDA-Public Use
  Company Number: DE-ROXANE LABORATORIES, INC.-2009-RO-00487RO

PATIENT
  Age: 71 Year
  Sex: Female

DRUGS (16)
  1. AZATHIOPRINE [Suspect]
     Indication: RHEUMATOID ARTHRITIS
  2. METHOTREXATE [Suspect]
     Indication: RHEUMATOID ARTHRITIS
  3. METHOTREXATE [Suspect]
     Route: 048
  4. GOLD [Suspect]
     Indication: RHEUMATOID ARTHRITIS
  5. CHLOROQUINE PHOSPHATE [Suspect]
     Indication: RHEUMATOID ARTHRITIS
  6. SULFASALAZINE [Suspect]
     Indication: RHEUMATOID ARTHRITIS
  7. D-PENICILLAMINE [Suspect]
     Indication: RHEUMATOID ARTHRITIS
  8. LEFLUNOMIDE [Suspect]
     Indication: RHEUMATOID ARTHRITIS
  9. INFLIXIMAB [Suspect]
     Indication: RHEUMATOID ARTHRITIS
     Route: 042
  10. MOXIFLOXACIN HCL [Suspect]
     Indication: INFECTIVE SPONDYLITIS
  11. MOXIFLOXACIN HCL [Suspect]
     Route: 048
  12. PREDNISONE [Concomitant]
     Indication: RHEUMATOID ARTHRITIS
     Dosage: 10MG
  13. IMMUSORBA TR-350 [Concomitant]
     Indication: RHEUMATOID ARTHRITIS
  14. SODIUM CHLORIDE (NACL) [Concomitant]
     Indication: CARDIOVASCULAR EVENT PROPHYLAXIS
     Route: 042
  15. UNFRACTIONATED HEPARIN [Concomitant]
     Indication: THROMBOSIS PROPHYLAXIS
  16. UNFRACTIONATED HEPARIN [Concomitant]

REACTIONS (2)
  - INFECTIVE SPONDYLITIS [None]
  - RHEUMATOID ARTHRITIS [None]
